FAERS Safety Report 11450677 (Version 1)
Quarter: 2015Q3

REPORT INFORMATION
  Report Type: Spontaneous
  Country: US (occurrence: None)
  Receive Date: 20150902
  Receipt Date: 20150902
  Transmission Date: 20151125
  Serious: Yes (Hospitalization, Other)
  Sender: FDA-Public Use
  Company Number: None

PATIENT
  Age: 49 Year
  Sex: Male

DRUGS (1)
  1. REYATAZ [Suspect]
     Active Substance: ATAZANAVIR SULFATE
     Indication: HIV INFECTION
     Dosage: DOSE FORM: ORAL  FREQUENCY: 1 PO DAILY
     Route: 048
     Dates: start: 2003

REACTIONS (1)
  - Heart rate decreased [None]

NARRATIVE: CASE EVENT DATE: 20150726
